FAERS Safety Report 5660385-5 (Version None)
Quarter: 2008Q1

REPORT INFORMATION
  Report Type: 
  Country: None (occurrence: None)
  Receive Date: 20080311
  Receipt Date: 20071010
  Transmission Date: 20080703
  Serious: No
  Sender: FDA-Public Use
  Company Number: US-BAYER-200713316BCC

PATIENT
  Age: 70 Year
  Sex: Female
  Weight: 61 kg

DRUGS (5)
  1. ALEVE [Suspect]
     Indication: ARTHRALGIA
     Dosage: TOTAL DAILY DOSE: 440 MG  UNIT DOSE: 220 MG
     Route: 048
     Dates: start: 20071007, end: 20071010
  2. VYTORIN [Concomitant]
  3. BISOPROLOL FUMARATE [Concomitant]
  4. GLAUCOMA DROPS [Concomitant]
  5. ASPIRIN [Concomitant]

REACTIONS (1)
  - INSOMNIA [None]
